FAERS Safety Report 22628062 (Version 1)
Quarter: 2023Q2

REPORT INFORMATION
  Report Type: Spontaneous
  Country: US (occurrence: US)
  Receive Date: 20230622
  Receipt Date: 20230622
  Transmission Date: 20230722
  Serious: Yes (Other)
  Sender: FDA-Public Use
  Company Number: US-drreddys-SPO/USA/23/0167406

PATIENT
  Age: 18 Year
  Sex: Male

DRUGS (2)
  1. ISOTRETINOIN [Suspect]
     Active Substance: ISOTRETINOIN
     Indication: Product used for unknown indication
     Dates: start: 20200504, end: 20200901
  2. ISOTRETINOIN [Suspect]
     Active Substance: ISOTRETINOIN

REACTIONS (4)
  - Penile haemorrhage [Unknown]
  - Lip swelling [Unknown]
  - Circumoral swelling [Unknown]
  - Epistaxis [Unknown]

NARRATIVE: CASE EVENT DATE: 20200901
